FAERS Safety Report 8576094-9 (Version None)
Quarter: 2012Q3

REPORT INFORMATION
  Report Type: 
  Country: None (occurrence: None)
  Receive Date: 20120807
  Receipt Date: 20120802
  Transmission Date: 20120928
  Serious: No
  Sender: FDA-Public Use
  Company Number: US-009507513-2012SP033547

PATIENT

DRUGS (2)
  1. PRILOSEC [Concomitant]
     Indication: PRODUCT USED FOR UNKNOWN INDICATION
  2. ASMANEX TWISTHALER [Suspect]
     Indication: OESOPHAGITIS
     Dosage: 1 DF, BID
     Dates: start: 20120608

REACTIONS (2)
  - OFF LABEL USE [None]
  - THERAPEUTIC PRODUCT INEFFECTIVE [None]
